FAERS Safety Report 7247558-5 (Version None)
Quarter: 2011Q1

REPORT INFORMATION
  Report Type: 
  Country: None (occurrence: None)
  Receive Date: 20110127
  Receipt Date: 20110113
  Transmission Date: 20110831
  Serious: Yes (Other)
  Sender: FDA-Public Use
  Company Number: US-ROCHE-731971

PATIENT
  Sex: Female
  Weight: 61.2 kg

DRUGS (2)
  1. ORTHO TRI-CYCLEN [Concomitant]
  2. ACCUTANE [Suspect]
     Indication: ACNE
     Route: 065
     Dates: start: 20020101

REACTIONS (6)
  - INFLAMMATORY BOWEL DISEASE [None]
  - IRRITABLE BOWEL SYNDROME [None]
  - SUICIDE ATTEMPT [None]
  - COLITIS ULCERATIVE [None]
  - DEPRESSION [None]
  - ANXIETY [None]
